FAERS Safety Report 4404368-1 (Version None)
Quarter: 2004Q3

REPORT INFORMATION
  Report Type: 
  Country: None (occurrence: None)
  Receive Date: 20040719
  Receipt Date: 20040706
  Transmission Date: 20050211
  Serious: Yes (Life-Threatening)
  Sender: FDA-Public Use
  Company Number: GB-JNJFOC-20040701707

PATIENT
  Age: 50 Year
  Sex: Female

DRUGS (12)
  1. REMICADE [Suspect]
     Indication: RHEUMATOID ARTHRITIS
     Dosage: INTRAVENOUS
     Route: 042
  2. PREDNISOLONE [Concomitant]
  3. MORPHINE SULFATE [Concomitant]
  4. PENICILLAMINE [Concomitant]
  5. AZATHIOPRINE [Concomitant]
  6. CYCLOPHOSPHAMIDE [Concomitant]
  7. CYCLOSPORINE [Concomitant]
  8. IMMUNE GLOBULIN INTRAVENOUS (HUMAN) [Concomitant]
  9. HYDROXYCHLOROQUINE PHOSPHATE (HYDROXYCHLOROQUINE PHOSPHATE) [Concomitant]
  10. ILOPROST (ILOPROST) [Concomitant]
  11. LEFLUNOMIDE [Concomitant]
  12. METHYLPREDNISOLONE [Concomitant]

REACTIONS (3)
  - METASTASES TO LUNG [None]
  - OVARIAN CANCER [None]
  - PLEURAL EFFUSION [None]
